FAERS Safety Report 15856988 (Version 1)
Quarter: 2019Q1

REPORT INFORMATION
  Report Type: Spontaneous
  Country: US (occurrence: US)
  Receive Date: 20190122
  Receipt Date: 20190122
  Transmission Date: 20190417
  Serious: Yes (Other)
  Sender: FDA-Public Use
  Company Number: None

PATIENT
  Age: 69 Year
  Sex: Female
  Weight: 58.05 kg

DRUGS (12)
  1. ARIMIDEX [Concomitant]
     Active Substance: ANASTROZOLE
  2. CAPECITABINE 500 MG TABLET [Suspect]
     Active Substance: CAPECITABINE
     Indication: BREAST CANCER FEMALE
     Route: 048
  3. ZOFRAN [Concomitant]
     Active Substance: ONDANSETRON HYDROCHLORIDE
  4. LISINOPRIL-HCTZ [Concomitant]
     Active Substance: HYDROCHLOROTHIAZIDE\LISINOPRIL
  5. OMGEGA 3 [Concomitant]
  6. RALOXIFENE. [Concomitant]
     Active Substance: RALOXIFENE
  7. SINGULAIR [Concomitant]
     Active Substance: MONTELUKAST SODIUM
  8. COQ 10 [Concomitant]
     Active Substance: UBIDECARENONE
  9. METOPROLOL. [Concomitant]
     Active Substance: METOPROLOL
  10. LIPITOR [Concomitant]
     Active Substance: ATORVASTATIN CALCIUM
  11. POTASSIUM CHLORIDE. [Concomitant]
     Active Substance: POTASSIUM CHLORIDE
  12. SYMBICORT [Concomitant]
     Active Substance: BUDESONIDE\FORMOTEROL FUMARATE DIHYDRATE

REACTIONS (1)
  - Disease progression [None]
